FAERS Safety Report 11902591 (Version 1)
Quarter: 2016Q1

REPORT INFORMATION
  Report Type: Spontaneous
  Country: GB (occurrence: GB)
  Receive Date: 20160108
  Receipt Date: 20160108
  Transmission Date: 20160526
  Serious: Yes (Life-Threatening)
  Sender: FDA-Public Use
  Company Number: GB-COL_21682_2015

PATIENT
  Age: 58 Year
  Sex: Female
  Weight: 71.5 kg

DRUGS (1)
  1. HYDROGEN PEROXIDE. [Suspect]
     Active Substance: HYDROGEN PEROXIDE
     Indication: PRODUCT USED FOR UNKNOWN INDICATION
     Dosage: NI/NI/

REACTIONS (1)
  - Air embolism [Recovered/Resolved]

NARRATIVE: CASE EVENT DATE: 20151205
